FAERS Safety Report 6304794-X (Version None)
Quarter: 2009Q3

REPORT INFORMATION
  Report Type: 
  Country: None (occurrence: None)
  Receive Date: 20090806
  Receipt Date: 20090721
  Transmission Date: 20100115
  Serious: Yes (Life-Threatening, Hospitalization, Other)
  Sender: FDA-Public Use
  Company Number: 2009BI019064

PATIENT
  Age: 59 Year
  Sex: Male

DRUGS (10)
  1. ZEVALIN [Suspect]
     Indication: NON-HODGKIN'S LYMPHOMA
     Dosage: ; 1X; IV
     Route: 042
     Dates: start: 20090226, end: 20090226
  2. RITUXIMAB [Concomitant]
  3. FLUDARABINE PHOSPHATE [Concomitant]
  4. AVANDIA [Concomitant]
  5. AMAREL [Concomitant]
  6. GLUCOR [Concomitant]
  7. VISKEN [Concomitant]
  8. LEVOTHYROX [Concomitant]
  9. CYMEVAN [Concomitant]
  10. VISKEN [Concomitant]

REACTIONS (8)
  - ABDOMINAL PAIN [None]
  - CHEST PAIN [None]
  - CYTOMEGALOVIRUS INFECTION [None]
  - DRUG TOXICITY [None]
  - GALLBLADDER DISORDER [None]
  - HYPOTENSION [None]
  - RENAL FAILURE [None]
  - SEPTIC SHOCK [None]
